FAERS Safety Report 6468281-0 (Version None)
Quarter: 2009Q4

REPORT INFORMATION
  Report Type: 
  Country: None (occurrence: None)
  Receive Date: 20091130
  Receipt Date: 20091119
  Transmission Date: 20100525
  Serious: Yes (Death)
  Sender: FDA-Public Use
  Company Number: 2009EN000283

PATIENT
  Age: 2 Month
  Sex: Female

DRUGS (8)
  1. ADAGEN (PEGADEMASE) [Suspect]
     Indication: COMBINED IMMUNODEFICIENCY
     Dosage: 187.5 IU;QD;IM
     Route: 030
     Dates: start: 20091023, end: 20091023
  2. PREDNISOLONE [Suspect]
     Indication: INFLAMMATION
     Dosage: 3 MG;QD;IV
     Route: 042
     Dates: start: 20091009, end: 20091024
  3. TEICOPLANIN [Concomitant]
  4. CEFTAZIDIME [Concomitant]
  5. FUROSEMIDE [Concomitant]
  6. SPIRONOLACTONE [Concomitant]
  7. HYDROCHLOROTHIAZIDE [Concomitant]
  8. LACTULOSE [Concomitant]

REACTIONS (6)
  - AMMONIA INCREASED [None]
  - BLOOD BILIRUBIN INCREASED [None]
  - HEPATORENAL SYNDROME [None]
  - MULTI-ORGAN FAILURE [None]
  - PLATELET COUNT DECREASED [None]
  - RESPIRATORY ARREST [None]
